FAERS Safety Report 6154703-1 (Version None)
Quarter: 2009Q2

REPORT INFORMATION
  Report Type: 
  Country: None (occurrence: None)
  Receive Date: 20090414
  Receipt Date: 20090409
  Transmission Date: 20091009
  Serious: Yes (Hospitalization)
  Sender: FDA-Public Use
  Company Number: A0778235A

PATIENT
  Age: 79 Year
  Sex: Female
  Weight: 55.8 kg

DRUGS (9)
  1. MELPHALAN [Suspect]
     Indication: MULTIPLE MYELOMA
     Dosage: 14MG PER DAY
     Route: 048
     Dates: start: 20090327
  2. VELCADE [Suspect]
     Indication: MULTIPLE MYELOMA
     Dosage: 2.1MG CYCLIC
     Route: 042
     Dates: start: 20090327
  3. PREDNISONE TAB [Suspect]
     Indication: MULTIPLE MYELOMA
     Dosage: 100MG PER DAY
     Route: 048
     Dates: start: 20090327
  4. LOPID [Concomitant]
  5. PROZAC [Concomitant]
  6. DIOVAN [Concomitant]
  7. ALLOPURINOL [Concomitant]
  8. NIFEDIPINE [Concomitant]
  9. LEVOXYL [Concomitant]

REACTIONS (8)
  - ABDOMINAL DISTENSION [None]
  - ABDOMINAL PAIN LOWER [None]
  - ASTHENIA [None]
  - COUGH [None]
  - ILEUS [None]
  - NAUSEA [None]
  - PNEUMONIA [None]
  - VOMITING [None]
